FAERS Safety Report 18146320 (Version 2)
Quarter: 2020Q3

REPORT INFORMATION
  Report Type: Spontaneous
  Country: US (occurrence: US)
  Receive Date: 20200813
  Receipt Date: 20200822
  Transmission Date: 20201103
  Serious: Yes (Hospitalization)
  Sender: FDA-Public Use
  Company Number: US-009507513-2008USA000811

PATIENT
  Age: 42 Year
  Sex: Female

DRUGS (2)
  1. CELESTONE SOLUSPAN [Suspect]
     Active Substance: BETAMETHASONE ACETATE\BETAMETHASONE SODIUM PHOSPHATE
     Indication: PAIN
     Dosage: CERVICAL VERTEBRA 6?7 AND LUMBAR VERTEBRAE  4?5 EPIDURAL INJECTION OF 8 MILLIGRAMS OF LIDOCAINE?BETA
     Route: 008
  2. LIDOCAINE. [Suspect]
     Active Substance: LIDOCAINE
     Indication: PAIN MANAGEMENT
     Dosage: CERVICAL VERTEBRA 6?7 AND LUMBAR VERTEBRAE 4?5 EPIDURAL INJECTION OF 8 MILLIGRAMS OF LIDOCAINE?BETAM
     Route: 008

REACTIONS (2)
  - Familial periodic paralysis [Recovered/Resolved]
  - Off label use [Unknown]
